FAERS Safety Report 16172171 (Version 4)
Quarter: 2020Q2

REPORT INFORMATION
  Report Type: Spontaneous
  Country: BR (occurrence: BR)
  Receive Date: 20190409
  Receipt Date: 20200409
  Transmission Date: 20200713
  Serious: Yes (Hospitalization, Other)
  Sender: FDA-Public Use
  Company Number: BR-AMGEN-BRASP2019039981

PATIENT
  Age: 53 Year
  Sex: Female
  Weight: 89 kg

DRUGS (2)
  1. LEFLUNOMIDE. [Concomitant]
     Active Substance: LEFLUNOMIDE
     Indication: RHEUMATOID ARTHRITIS
     Dosage: UNK
  2. ENBREL [Suspect]
     Active Substance: ETANERCEPT
     Indication: RHEUMATOID ARTHRITIS
     Dosage: 50 MILLIGRAM, WEEKLY
     Route: 065
     Dates: start: 20190101

REACTIONS (17)
  - Headache [Recovering/Resolving]
  - Ear pain [Recovering/Resolving]
  - Arthralgia [Recovered/Resolved]
  - Eye pain [Not Recovered/Not Resolved]
  - Bone pain [Not Recovered/Not Resolved]
  - Depressed mood [Not Recovered/Not Resolved]
  - Decreased immune responsiveness [Recovering/Resolving]
  - Pain [Unknown]
  - Neuritis [Recovering/Resolving]
  - Mastoiditis [Recovered/Resolved]
  - Fistula discharge [Recovering/Resolving]
  - Dental caries [Unknown]
  - Labyrinthine fistula [Not Recovered/Not Resolved]
  - Memory impairment [Recovering/Resolving]
  - Tinnitus [Recovering/Resolving]
  - Therapeutic product effect incomplete [Unknown]
  - Joint effusion [Recovered/Resolved]

NARRATIVE: CASE EVENT DATE: 2019
